FAERS Safety Report 5564228-X (Version None)
Quarter: 2007Q4

REPORT INFORMATION
  Report Type: 
  Country: None (occurrence: None)
  Receive Date: 20071217
  Receipt Date: 20071207
  Transmission Date: 20080405
  Serious: Yes (Other)
  Sender: FDA-Public Use
  Company Number: GB-ABBOTT-07P-167-0427729-00

PATIENT
  Age: 43 Year
  Sex: Male

DRUGS (14)
  1. HUMIRA [Suspect]
     Indication: CROHN'S DISEASE
     Dosage: LOADING DOSE
  2. HUMIRA [Suspect]
  3. HUMIRA [Suspect]
  4. PREDNISOLONE [Concomitant]
     Indication: CROHN'S DISEASE
  5. PREDNISOLONE [Concomitant]
     Dates: start: 19960101
  6. PREDNISOLONE [Concomitant]
     Dates: start: 20000801
  7. PREDNISOLONE [Concomitant]
     Dates: start: 20010901
  8. PREDNISOLONE [Concomitant]
     Dates: start: 20050101
  9. AZATHIOPRINE [Concomitant]
     Indication: CROHN'S DISEASE
     Dates: start: 19960101
  10. AZATHIOPRINE [Concomitant]
  11. AZATHIOPRINE [Concomitant]
     Dates: start: 20010901, end: 20050701
  12. AZATHIOPRINE [Concomitant]
     Dates: end: 20070401
  13. PROPHYLAXIS FOR PNEUMOCYSTITIS NOS [Concomitant]
     Indication: PROPHYLAXIS
  14. PROPHYLAXIS FOR PNEUMOCYSTITIS NOS [Concomitant]
     Indication: PNEUMOCYSTIS JIROVECI INFECTION

REACTIONS (10)
  - ABDOMINAL PAIN [None]
  - CD4 LYMPHOCYTES DECREASED [None]
  - DRUG INEFFECTIVE [None]
  - GASTROINTESTINAL HYPOMOTILITY [None]
  - IMPAIRED WORK ABILITY [None]
  - INJECTION SITE PAIN [None]
  - INTESTINAL STENOSIS [None]
  - IRON DEFICIENCY ANAEMIA [None]
  - LETHARGY [None]
  - LYMPHOPENIA [None]
